FAERS Safety Report 15425843 (Version 4)
Quarter: 2018Q4

REPORT INFORMATION
  Report Type: Spontaneous
  Country: TW (occurrence: TW)
  Receive Date: 20180925
  Receipt Date: 20181213
  Transmission Date: 20190204
  Serious: Yes (Hospitalization, Other)
  Sender: FDA-Public Use
  Company Number: TW-PFIZER INC-2018286044

PATIENT
  Age: 65 Year
  Sex: Male

DRUGS (3)
  1. SUTENT [Suspect]
     Active Substance: SUNITINIB MALATE
     Indication: RENAL CELL CARCINOMA
     Dosage: 3 DF, CYCLIC (QD, ONE WEEK ON  AND ONE WEEK OFF)
     Route: 048
     Dates: start: 20180616, end: 20180629
  2. SUTENT [Suspect]
     Active Substance: SUNITINIB MALATE
     Dosage: UNK, CYCLIC (37.5 MG, DAILY ONE WEEK, THEN 25 MG, QD FOR ONE WEEK, THEN WITHDRAWN FOR ONE WEEK)
     Route: 048
     Dates: start: 20180721, end: 20181007
  3. SUTENT [Suspect]
     Active Substance: SUNITINIB MALATE
     Dosage: UNK, (12.5MG 3 DF QD FOR ONE WEEK,  12.5MG 2 DF QD FOR ONE WEEK, THEN WITHDRAWN FOR ONE WEEK)
     Route: 048
     Dates: start: 20181208

REACTIONS (6)
  - Anal fistula [Recovering/Resolving]
  - Decreased appetite [Recovered/Resolved]
  - Anal abscess [Unknown]
  - Diarrhoea [Recovered/Resolved]
  - Palmar-plantar erythrodysaesthesia syndrome [Recovered/Resolved]
  - Abdominal distension [Recovered/Resolved]

NARRATIVE: CASE EVENT DATE: 2018
